FAERS Safety Report 14539777 (Version 1)
Quarter: 2018Q1

REPORT INFORMATION
  Report Type: Spontaneous
  Country: US (occurrence: US)
  Receive Date: 20180215
  Receipt Date: 20180215
  Transmission Date: 20180509
  Serious: Yes (Other)
  Sender: FDA-Public Use
  Company Number: None

PATIENT
  Age: 70 Year
  Sex: Female
  Weight: 62.1 kg

DRUGS (13)
  1. MCHC [Concomitant]
  2. EPA EXTRA [Concomitant]
  3. VALSARTAN. [Concomitant]
     Active Substance: VALSARTAN
  4. QUNOL LIQUID COQ10 SUPERIOR ABSORPTION [Concomitant]
     Active Substance: DIETARY SUPPLEMENT
  5. COREG [Concomitant]
     Active Substance: CARVEDILOL
  6. XANAX [Concomitant]
     Active Substance: ALPRAZOLAM
  7. FISH OIL [Concomitant]
     Active Substance: FISH OIL
  8. MAGNESIUM ASPORATATE [Concomitant]
  9. PROLIA [Suspect]
     Active Substance: DENOSUMAB
     Indication: OSTEOPOROSIS
     Route: 030
     Dates: start: 20180112
  10. VITAMIN D [Concomitant]
     Active Substance: CHOLECALCIFEROL
  11. CALCIUM [Concomitant]
     Active Substance: CALCIUM
  12. VITAMIN E [Concomitant]
     Active Substance: .ALPHA.-TOCOPHEROL
  13. VITAMIN C [Concomitant]
     Active Substance: ASCORBIC ACID

REACTIONS (4)
  - Arthralgia [None]
  - Groin pain [None]
  - Back pain [None]
  - Musculoskeletal pain [None]

NARRATIVE: CASE EVENT DATE: 20180114
